FAERS Safety Report 16683627 (Version 1)
Quarter: 2019Q3

REPORT INFORMATION
  Report Type: Spontaneous
  Country: US (occurrence: US)
  Receive Date: 20190624
  Receipt Date: 20190624
  Transmission Date: 20191004
  Serious: No
  Sender: FDA-Public Use
  Company Number: None

PATIENT
  Sex: Male

DRUGS (1)
  1. CEFEPIME 2 GM APOTEX [Suspect]
     Active Substance: CEFEPIME HYDROCHLORIDE
     Indication: OSTEOMYELITIS
     Dosage: ?          OTHER FREQUENCY:EVERY12HRS;?
     Route: 042
     Dates: start: 20180520

REACTIONS (2)
  - Pruritus generalised [None]
  - Rash generalised [None]
